FAERS Safety Report 6359347-4 (Version None)
Quarter: 2009Q3

REPORT INFORMATION
  Report Type: 
  Country: None (occurrence: None)
  Receive Date: 20090914
  Receipt Date: 20090909
  Transmission Date: 20100115
  Serious: Yes (Other)
  Sender: FDA-Public Use
  Company Number: 2008SP025825

PATIENT
  Age: 65 Year
  Sex: Female
  Weight: 45 kg

DRUGS (27)
  1. TEMODAL [Suspect]
     Indication: ANAPLASTIC ASTROCYTOMA
     Dosage: 150 MG/M2; QD; PO
     Route: 048
     Dates: start: 20060921, end: 20060925
  2. TEMODAL [Suspect]
     Indication: ANAPLASTIC ASTROCYTOMA
     Dosage: 150 MG/M2; QD; PO
     Route: 048
     Dates: start: 20061023, end: 20061027
  3. TEMODAL [Suspect]
     Indication: ANAPLASTIC ASTROCYTOMA
     Dosage: 150 MG/M2; QD; PO
     Route: 048
     Dates: start: 20061120, end: 20061124
  4. TEMODAL [Suspect]
     Indication: ANAPLASTIC ASTROCYTOMA
     Dosage: 150 MG/M2; QD; PO
     Route: 048
     Dates: start: 20061218, end: 20061222
  5. TEMODAL [Suspect]
     Indication: ANAPLASTIC ASTROCYTOMA
     Dosage: 150 MG/M2; QD; PO
     Route: 048
     Dates: start: 20070115, end: 20070119
  6. TEMODAL [Suspect]
     Indication: ANAPLASTIC ASTROCYTOMA
     Dosage: 150 MG/M2; QD; PO
     Route: 048
     Dates: start: 20070219, end: 20070223
  7. TEMODAL [Suspect]
     Indication: ANAPLASTIC ASTROCYTOMA
     Dosage: 150 MG/M2; QD; PO
     Route: 048
     Dates: start: 20070319, end: 20070323
  8. TEMODAL [Suspect]
     Indication: ANAPLASTIC ASTROCYTOMA
     Dosage: 150 MG/M2; QD; PO
     Route: 048
     Dates: start: 20070416, end: 20070420
  9. TEMODAL [Suspect]
     Indication: ANAPLASTIC ASTROCYTOMA
     Dosage: 150 MG/M2; QD; PO
     Route: 048
     Dates: start: 20070514, end: 20070518
  10. TEMODAL [Suspect]
     Indication: ANAPLASTIC ASTROCYTOMA
     Dosage: 150 MG/M2; QD; PO
     Route: 048
     Dates: start: 20070611, end: 20070615
  11. TEMODAL [Suspect]
     Indication: ANAPLASTIC ASTROCYTOMA
     Dosage: 150 MG/M2; QD; PO
     Route: 048
     Dates: start: 20070709, end: 20070713
  12. TEMODAL [Suspect]
     Indication: ANAPLASTIC ASTROCYTOMA
     Dosage: 150 MG/M2; QD; PO
     Route: 048
     Dates: start: 20070806, end: 20070810
  13. TEMODAL [Suspect]
     Indication: ANAPLASTIC ASTROCYTOMA
     Dosage: 150 MG/M2; QD; PO
     Route: 048
     Dates: start: 20070903, end: 20070907
  14. TEMODAL [Suspect]
     Indication: ANAPLASTIC ASTROCYTOMA
     Dosage: 150 MG/M2; QD; PO
     Route: 048
     Dates: start: 20071001, end: 20071005
  15. TEMODAL [Suspect]
     Indication: ANAPLASTIC ASTROCYTOMA
     Dosage: 150 MG/M2; QD; PO
     Route: 048
     Dates: start: 20071029, end: 20071103
  16. TEMODAL [Suspect]
     Indication: ANAPLASTIC ASTROCYTOMA
     Dosage: 150 MG/M2; QD; PO
     Route: 048
     Dates: start: 20071126, end: 20071130
  17. TEMODAL [Suspect]
     Indication: ANAPLASTIC ASTROCYTOMA
     Dosage: 150 MG/M2; QD; PO
     Route: 048
     Dates: start: 20071220, end: 20071224
  18. TEMODAL [Suspect]
     Indication: ANAPLASTIC ASTROCYTOMA
     Dosage: 150 MG/M2; QD; PO
     Route: 048
     Dates: start: 20080129, end: 20080202
  19. TEMODAL [Suspect]
     Indication: ANAPLASTIC ASTROCYTOMA
     Dosage: 150 MG/M2; QD; PO
     Route: 048
     Dates: start: 20080226, end: 20080301
  20. TEMODAL [Suspect]
     Indication: ANAPLASTIC ASTROCYTOMA
     Dosage: 150 MG/M2; QD; PO
     Route: 048
     Dates: start: 20080324, end: 20080328
  21. TEMODAL [Suspect]
     Indication: ANAPLASTIC ASTROCYTOMA
     Dosage: 150 MG/M2; QD; PO
     Route: 048
     Dates: start: 20080508, end: 20080512
  22. TEMODAL [Suspect]
     Indication: ANAPLASTIC ASTROCYTOMA
     Dosage: 150 MG/M2; QD; PO
     Route: 048
     Dates: start: 20080605, end: 20080609
  23. TEMODAL [Suspect]
     Indication: ANAPLASTIC ASTROCYTOMA
     Dosage: 150 MG/M2; QD; PO
     Route: 048
     Dates: start: 20080710, end: 20080714
  24. TEMODAL [Suspect]
     Indication: ANAPLASTIC ASTROCYTOMA
     Dosage: 150 MG/M2; QD; PO
     Route: 048
     Dates: start: 20080807, end: 20080811
  25. ZOFRAN [Concomitant]
  26. ALEVIATIN [Concomitant]
  27. GASTER [Concomitant]

REACTIONS (3)
  - PERFORMANCE STATUS DECREASED [None]
  - POTENTIATING DRUG INTERACTION [None]
  - RADIATION NECROSIS [None]
